FAERS Safety Report 7166295-9 (Version None)
Quarter: 2010Q4

REPORT INFORMATION
  Report Type: 
  Country: None (occurrence: None)
  Receive Date: 20101216
  Receipt Date: 20101203
  Transmission Date: 20110411
  Serious: Yes (Life-Threatening, Hospitalization, Disabling, Other)
  Sender: FDA-Public Use
  Company Number: CY-PFIZER INC-2009198817

PATIENT
  Age: 16 Year
  Sex: Male

DRUGS (1)
  1. ZITHROMAX [Suspect]
     Indication: VIRAL INFECTION
     Dosage: 500 MG, 1X/DAY
     Route: 048
     Dates: start: 20090303, end: 20090401

REACTIONS (8)
  - ACUTE HEPATIC FAILURE [None]
  - BONE MARROW DISORDER [None]
  - DRUG INEFFECTIVE [None]
  - HEPATIC ENCEPHALOPATHY [None]
  - HEPATIC NECROSIS [None]
  - INTRACRANIAL PRESSURE INCREASED [None]
  - NEUROLOGICAL SYMPTOM [None]
  - RENAL FAILURE [None]
